FAERS Safety Report 17628431 (Version 1)
Quarter: 2020Q2

REPORT INFORMATION
  Report Type: Spontaneous
  Country: US (occurrence: US)
  Receive Date: 20200406
  Receipt Date: 20200406
  Transmission Date: 20200713
  Serious: Yes (Other)
  Sender: FDA-Public Use
  Company Number: US-DRREDDYS-USA/USA/20/0121610

PATIENT
  Age: 58 Year
  Sex: Male

DRUGS (2)
  1. HEPARIN SODIUM. [Suspect]
     Active Substance: HEPARIN SODIUM
     Indication: ANTICOAGULANT THERAPY
     Dosage: 25000 UNITS IN 500ML DEXTROSE 5PERCENT TREATMENT (50 UNITS/ML)
  2. ALTEPLASE. [Suspect]
     Active Substance: ALTEPLASE
     Indication: ANTICOAGULANT THERAPY

REACTIONS (2)
  - Device related thrombosis [Recovered/Resolved]
  - Haemorrhage [Recovered/Resolved]
